FAERS Safety Report 24261948 (Version 1)
Quarter: 2024Q3

REPORT INFORMATION
  Report Type: Spontaneous
  Country: US (occurrence: US)
  Receive Date: 20240829
  Receipt Date: 20240829
  Transmission Date: 20241017
  Serious: Yes (Other)
  Sender: BRISTOL MYERS SQUIBB
  Company Number: US-BRISTOL-MYERS SQUIBB COMPANY-2024-136775

PATIENT
  Age: 76 Year
  Sex: Male
  Weight: 62.6 kg

DRUGS (1)
  1. REVLIMID [Suspect]
     Active Substance: LENALIDOMIDE
     Indication: Lymphocytic leukaemia
     Dosage: FREQUENCY: 1 CAPSULE DAILY FOR 21 DAYS, THEN 7 DAYS OFF
     Route: 048

REACTIONS (2)
  - Full blood count decreased [Unknown]
  - Off label use [Unknown]
